FAERS Safety Report 7294970-4 (Version None)
Quarter: 2011Q1

REPORT INFORMATION
  Report Type: 
  Country: None (occurrence: None)
  Receive Date: 20110216
  Receipt Date: 20110210
  Transmission Date: 20110831
  Serious: Yes (Other)
  Sender: FDA-Public Use
  Company Number: JP-SANOFI-AVENTIS-2010SA055165

PATIENT
  Sex: Female

DRUGS (2)
  1. ALLEGRA [Suspect]
     Indication: URTICARIA
     Dosage: SINGLE USE (IT IS ONLY GENERATED).
     Route: 048
     Dates: start: 20100912
  2. CARDIOVASCULAR SYSTEM DRUGS [Suspect]

REACTIONS (1)
  - ELECTROCARDIOGRAM QT PROLONGED [None]
